FAERS Safety Report 19888939 (Version 1)
Quarter: 2021Q3

REPORT INFORMATION
  Report Type: Spontaneous
  Country: JP (occurrence: JP)
  Receive Date: 20210928
  Receipt Date: 20210928
  Transmission Date: 20211014
  Serious: Yes (Other)
  Sender: FDA-Public Use
  Company Number: NVSJ2021JP012927

PATIENT
  Age: 65 Year
  Sex: Male

DRUGS (2)
  1. EQUMET [Suspect]
     Active Substance: METFORMIN HYDROCHLORIDE\VILDAGLIPTIN
     Dosage: 1DF: METFORMIN HYDROCHLORIDE 500MG/ VILDAGLIPTIN 50MG, UNK
     Route: 048
  2. EQUMET [Suspect]
     Active Substance: METFORMIN HYDROCHLORIDE\VILDAGLIPTIN
     Indication: TYPE 2 DIABETES MELLITUS
     Dosage: 1DF: METFORMIN HYDROCHLORIDE 250MG/ VILDAGLIPTIN 50MG, UNK
     Route: 048
     Dates: start: 202107

REACTIONS (3)
  - Faeces soft [Recovered/Resolved]
  - Diabetes mellitus inadequate control [Unknown]
  - Diarrhoea [Recovered/Resolved]
